FAERS Safety Report 20374506 (Version 1)
Quarter: 2022Q1

REPORT INFORMATION
  Report Type: Spontaneous
  Country: US (occurrence: US)
  Receive Date: 20220125
  Receipt Date: 20220125
  Transmission Date: 20220423
  Serious: Yes (Death)
  Sender: FDA-Public Use
  Company Number: US-EPICPHARMA-US-2022EPCSPO00062

PATIENT
  Age: 45 Year
  Sex: Male

DRUGS (4)
  1. FUROSEMIDE [Suspect]
     Active Substance: FUROSEMIDE
     Indication: Peripheral swelling
     Route: 065
  2. FUROSEMIDE [Suspect]
     Active Substance: FUROSEMIDE
     Indication: Abdominal distension
  3. FUROSEMIDE [Suspect]
     Active Substance: FUROSEMIDE
     Indication: Pulmonary oedema
  4. QINLOCK [Suspect]
     Active Substance: RIPRETINIB
     Indication: Gastrointestinal disorder
     Route: 048
     Dates: start: 20200525, end: 20200616

REACTIONS (2)
  - Death [Fatal]
  - Drug interaction [Fatal]
